FAERS Safety Report 6060612-9 (Version None)
Quarter: 2009Q1

REPORT INFORMATION
  Report Type: 
  Country: None (occurrence: None)
  Receive Date: 20090202
  Receipt Date: 20090121
  Transmission Date: 20090719
  Serious: Yes (Death, Hospitalization)
  Sender: FDA-Public Use
  Company Number: JP-AMGEN-US327767

PATIENT
  Sex: Female
  Weight: 29 kg

DRUGS (8)
  1. ENBREL [Suspect]
     Indication: RHEUMATOID ARTHRITIS
     Route: 058
     Dates: start: 20080715, end: 20080912
  2. ENBREL [Suspect]
     Route: 058
     Dates: start: 20080916, end: 20081216
  3. POLLAKISU [Concomitant]
     Indication: NOCTURIA
     Route: 048
     Dates: start: 20081112, end: 20081216
  4. KLARICID [Concomitant]
     Indication: ATYPICAL MYCOBACTERIAL INFECTION
     Route: 048
     Dates: start: 20070201, end: 20081217
  5. CRAVIT [Concomitant]
     Indication: ATYPICAL MYCOBACTERIAL INFECTION
     Route: 048
     Dates: start: 20070201, end: 20081217
  6. RHEUMATREX [Concomitant]
     Indication: RHEUMATOID ARTHRITIS
     Route: 048
     Dates: start: 20080617, end: 20081211
  7. RHEUMATREX [Concomitant]
     Route: 048
     Dates: start: 20070701
  8. RIFADIN [Concomitant]
     Indication: ATYPICAL MYCOBACTERIAL INFECTION
     Route: 048
     Dates: start: 20070201, end: 20081217

REACTIONS (7)
  - CARDIAC ARREST [None]
  - CARDIAC FAILURE [None]
  - CEREBRAL INFARCTION [None]
  - CONDITION AGGRAVATED [None]
  - HYPERCAPNIA [None]
  - OEDEMA PERIPHERAL [None]
  - PLATELET COUNT DECREASED [None]
